FAERS Safety Report 7418613-1 (Version None)
Quarter: 2011Q2

REPORT INFORMATION
  Report Type: 
  Country: None (occurrence: None)
  Receive Date: 20110415
  Receipt Date: 20110216
  Transmission Date: 20111010
  Serious: Yes (Other)
  Sender: FDA-Public Use
  Company Number: US-BAYER-201022339NA

PATIENT
  Age: 32 Year
  Sex: Female
  Weight: 61.224 kg

DRUGS (5)
  1. YAZ [Suspect]
     Indication: ACNE
     Dosage: UNK
     Route: 048
     Dates: start: 20071101, end: 20080401
  2. CLONAZEPAM [Concomitant]
     Dosage: UNK
     Dates: start: 20080101
  3. YASMIN [Suspect]
     Indication: PRODUCT USED FOR UNKNOWN INDICATION
     Route: 048
     Dates: start: 20080101, end: 20080501
  4. ASTHMAHALER [Concomitant]
  5. NSAID'S [Concomitant]
     Dosage: UNK UNK, PRN

REACTIONS (4)
  - SKIN ULCER [None]
  - PAIN [None]
  - THROMBOSIS [None]
  - SEGMENTED HYALINISING VASCULITIS [None]
